FAERS Safety Report 14801676 (Version 2)
Quarter: 2018Q2

REPORT INFORMATION
  Report Type: Spontaneous
  Country: ES (occurrence: ES)
  Receive Date: 20180424
  Receipt Date: 20180515
  Transmission Date: 20180711
  Serious: Yes (Other)
  Sender: FDA-Public Use
  Company Number: ES-TEVA-2018-ES-884740

PATIENT
  Age: 42 Year
  Sex: Female

DRUGS (10)
  1. ETHOSUXIMIDE. [Suspect]
     Active Substance: ETHOSUXIMIDE
     Indication: EPILEPSY
     Route: 065
  2. LAMOTRIGINE. [Suspect]
     Active Substance: LAMOTRIGINE
  3. VALPROIC-ACID [Concomitant]
     Indication: EPILEPSY
     Dosage: THERAPY STARTED AT THE AGE OF 16 YEARS AS A MAINTENANCE THERAPY, LATER DOSE INCREASED DUE TO FURT...
     Route: 065
  4. TOPIRAMATE. [Concomitant]
     Active Substance: TOPIRAMATE
     Indication: EPILEPSY
     Route: 065
  5. LEVETIRACETAM. [Suspect]
     Active Substance: LEVETIRACETAM
     Indication: EPILEPSY
     Route: 065
  6. CLOBAZAM [Suspect]
     Active Substance: CLOBAZAM
     Indication: EPILEPSY
     Route: 065
  7. VALPROIC-ACID [Concomitant]
     Route: 065
  8. ZONISAMIDE. [Concomitant]
     Active Substance: ZONISAMIDE
     Indication: EPILEPSY
     Route: 065
  9. LAMOTRIGINE. [Suspect]
     Active Substance: LAMOTRIGINE
     Indication: EPILEPSY
     Dosage: INITIALLY - DOSED UP TO 100MG/DAY
     Route: 065
  10. PROGESTERONE. [Concomitant]
     Active Substance: PROGESTERONE
     Indication: EPILEPSY
     Route: 065

REACTIONS (6)
  - Depressed mood [Unknown]
  - Vomiting [Unknown]
  - Dizziness [Unknown]
  - Dyspepsia [Unknown]
  - Suicidal behaviour [Unknown]
  - Somnolence [Unknown]
